FAERS Safety Report 4925666-9 (Version None)
Quarter: 2006Q1

REPORT INFORMATION
  Report Type: 
  Country: None (occurrence: None)
  Receive Date: 20060228
  Receipt Date: 20050118
  Transmission Date: 20060701
  Serious: Yes (Other)
  Sender: FDA-Public Use
  Company Number: US-GLAXOSMITHKLINE-A0541402A

PATIENT
  Age: 39 Year
  Sex: Female
  Weight: 110 kg

DRUGS (6)
  1. LAMICTAL [Suspect]
     Route: 048
     Dates: start: 20041025, end: 20041101
  2. PROTONIX [Concomitant]
  3. SYNTHROID [Concomitant]
  4. VICODIN [Concomitant]
  5. LICO3 [Concomitant]
  6. CELEBREX [Concomitant]

REACTIONS (3)
  - ERYTHEMA [None]
  - RASH [None]
  - RASH PUSTULAR [None]
